FAERS Safety Report 12429137 (Version 1)
Quarter: 2016Q2

REPORT INFORMATION
  Report Type: Report from Study
  Country: US (occurrence: US)
  Receive Date: 20160602
  Receipt Date: 20160602
  Transmission Date: 20160815
  Serious: Yes (Disabling, Other)
  Sender: FDA-Public Use
  Company Number: US-ASTRAZENECA-2016SE56693

PATIENT
  Sex: Female
  Weight: 88 kg

DRUGS (1)
  1. SYMBICORT [Suspect]
     Active Substance: BUDESONIDE\FORMOTEROL FUMARATE DIHYDRATE
     Dosage: 160/4.5 MCG, 2 PUFFS  TWO TIMES A DAY
     Route: 055

REACTIONS (5)
  - Drug dose omission [Unknown]
  - Fibromyalgia [Unknown]
  - Bone disorder [Unknown]
  - Cerebrovascular accident [Unknown]
  - Intentional product misuse [Not Recovered/Not Resolved]
